FAERS Safety Report 6050180-X (Version None)
Quarter: 2009Q1

REPORT INFORMATION
  Report Type: 
  Country: None (occurrence: None)
  Receive Date: 20090121
  Receipt Date: 20090121
  Transmission Date: 20090719
  Serious: Yes (Life-Threatening)
  Sender: FDA-Public Use
  Company Number: None

PATIENT
  Sex: Male
  Weight: 67.27 kg

DRUGS (5)
  1. INDERAL [Suspect]
     Dosage: 40MG  TABLET BID ORAL
     Route: 048
     Dates: start: 20081017, end: 20090116
  2. KETOCONAZOLE [Concomitant]
  3. PANCREASE [Concomitant]
  4. REMERON [Concomitant]
  5. ZANTAC [Concomitant]

REACTIONS (1)
  - BRADYCARDIA [None]
